FAERS Safety Report 21906854 (Version 2)
Quarter: 2023Q1

REPORT INFORMATION
  Report Type: Report from Study
  Country: US (occurrence: US)
  Receive Date: 20230125
  Receipt Date: 20230302
  Transmission Date: 20230417
  Serious: Yes (Death)
  Sender: FDA-Public Use
  Company Number: US-ABBVIE-4282115

PATIENT
  Age: 85 Year
  Sex: Male

DRUGS (1)
  1. VENCLEXTA [Suspect]
     Active Substance: VENETOCLAX
     Indication: Chronic lymphocytic leukaemia
     Dosage: WITH FOOD AND A FULL GLASS OF WATER (KEEP IN ORIGINAL BOTTLE)?FORM STRENGTH: 100 MG
     Route: 048
     Dates: start: 20210826, end: 20230110

REACTIONS (1)
  - Death [Fatal]

NARRATIVE: CASE EVENT DATE: 20230110
